FAERS Safety Report 4413843-5 (Version None)
Quarter: 2004Q3

REPORT INFORMATION
  Report Type: 
  Country: None (occurrence: None)
  Receive Date: 20040728
  Receipt Date: 20040721
  Transmission Date: 20050211
  Serious: Yes (Life-Threatening, Disabling)
  Sender: FDA-Public Use
  Company Number: 2004UW15477

PATIENT
  Age: 59 Year
  Sex: Female

DRUGS (3)
  1. ELAVIL [Suspect]
     Indication: ANALGESIC EFFECT
     Dosage: 10 MG QD PO
     Route: 048
     Dates: start: 20040421, end: 20040512
  2. TIBOLONE [Suspect]
     Indication: HORMONE REPLACEMENT THERAPY
     Dosage: 2.5 MG PO
     Route: 048
     Dates: start: 20020612, end: 20040512
  3. FYBOGEL MEBEVERINE [Concomitant]

REACTIONS (1)
  - CEREBROVASCULAR ACCIDENT [None]
